FAERS Safety Report 6824416-9 (Version None)
Quarter: 2010Q3

REPORT INFORMATION
  Report Type: 
  Country: None (occurrence: None)
  Receive Date: 20100708
  Receipt Date: 20061021
  Transmission Date: 20110219
  Serious: Yes (Other)
  Sender: FDA-Public Use
  Company Number: US-PFIZER INC-2006129795

PATIENT
  Sex: Male
  Weight: 95.25 kg

DRUGS (5)
  1. CHANTIX [Suspect]
     Indication: SMOKING CESSATION THERAPY
     Route: 048
     Dates: start: 20061005
  2. TOPROL-XL [Concomitant]
     Route: 048
  3. LEVOTHROID [Concomitant]
     Route: 048
  4. VALSARTAN [Concomitant]
     Route: 048
  5. ACETYLSALICYLIC ACID [Concomitant]
     Route: 048

REACTIONS (4)
  - BLOOD PRESSURE DECREASED [None]
  - DEPRESSION [None]
  - HEART RATE DECREASED [None]
  - LETHARGY [None]
